FAERS Safety Report 4290299-7 (Version None)
Quarter: 2004Q1

REPORT INFORMATION
  Report Type: 
  Country: None (occurrence: None)
  Receive Date: 20040209
  Receipt Date: 20040127
  Transmission Date: 20041129
  Serious: Yes (Disabling)
  Sender: FDA-Public Use
  Company Number: HQWYE897223DEC03

PATIENT
  Age: 52 Year
  Sex: Female
  Weight: 86.26 kg

DRUGS (24)
  1. EFFEXOR [Suspect]
     Indication: DEPRESSION
     Dosage: ORAL
     Route: 048
     Dates: start: 19940101, end: 20011101
  2. EFFEXOR [Suspect]
     Indication: PANIC DISORDER
     Dosage: ORAL
     Route: 048
     Dates: start: 19940101, end: 20011101
  3. COLACE (DOCUSATE SODIUM, ) [Suspect]
  4. EFFEXOR XR [Suspect]
     Indication: DEPRESSION
     Dosage: ORAL;  225 MG 1X PER 1 DAY, ORAL;  75 MG 1X PER 1 DAY, ORAL
     Route: 048
     Dates: start: 20031001, end: 20030101
  5. EFFEXOR XR [Suspect]
     Indication: PANIC DISORDER
     Dosage: ORAL;  225 MG 1X PER 1 DAY, ORAL;  75 MG 1X PER 1 DAY, ORAL
     Route: 048
     Dates: start: 20031001, end: 20030101
  6. EFFEXOR XR [Suspect]
     Indication: DEPRESSION
     Dosage: ORAL;  225 MG 1X PER 1 DAY, ORAL;  75 MG 1X PER 1 DAY, ORAL
     Route: 048
     Dates: start: 20011201, end: 20031001
  7. EFFEXOR XR [Suspect]
     Indication: PANIC DISORDER
     Dosage: ORAL;  225 MG 1X PER 1 DAY, ORAL;  75 MG 1X PER 1 DAY, ORAL
     Route: 048
     Dates: start: 20011201, end: 20031001
  8. EFFEXOR XR [Suspect]
     Indication: DEPRESSION
     Dosage: ORAL;  225 MG 1X PER 1 DAY, ORAL;  75 MG 1X PER 1 DAY, ORAL
     Route: 048
     Dates: start: 20030101
  9. EFFEXOR XR [Suspect]
     Indication: PANIC DISORDER
     Dosage: ORAL;  225 MG 1X PER 1 DAY, ORAL;  75 MG 1X PER 1 DAY, ORAL
     Route: 048
     Dates: start: 20030101
  10. GLUCOSAMINE (GLUCOSAMINE, ) [Suspect]
  11. LITHIUM CARBONATE [Suspect]
  12. PREMARIN [Concomitant]
  13. SEROQUEL [Concomitant]
  14. XANAX [Concomitant]
  15. SYNTHROID [Concomitant]
  16. PROTONIX [Concomitant]
  17. HYOSCINE HYDROBROMIDE (HYOSCINE HYDROBROMIDE) [Concomitant]
  18. PHENOBARBITAL TAB [Concomitant]
  19. ATROPINE [Concomitant]
  20. HYOSCYAMINE SULFATE AND PHENOBARBITAL [Concomitant]
  21. PEPCID [Concomitant]
  22. CALCIUM WITH VITAMIN D (CALCIUM PHOSPHATE/CALCIUM SODIUM LACTATE/ERGOC [Concomitant]
  23. LEXAPRO [Concomitant]
  24. PROZAC [Concomitant]

REACTIONS (21)
  - APPETITE DISORDER [None]
  - BALANCE DISORDER [None]
  - BLOOD CHOLESTEROL INCREASED [None]
  - BLOOD TRIGLYCERIDES INCREASED [None]
  - DEPRESSION [None]
  - DRUG INEFFECTIVE [None]
  - DRUG INTERACTION [None]
  - DRUG INTERACTION INHIBITION [None]
  - DRUG WITHDRAWAL SYNDROME [None]
  - FALL [None]
  - HYPOAESTHESIA [None]
  - NAUSEA [None]
  - OEDEMA PERIPHERAL [None]
  - PARAESTHESIA [None]
  - RASH [None]
  - RASH PRURITIC [None]
  - SCAR [None]
  - STOMATITIS [None]
  - SWOLLEN TONGUE [None]
  - VERTIGO [None]
  - WEIGHT INCREASED [None]
